FAERS Safety Report 7816252-1 (Version None)
Quarter: 2011Q4

REPORT INFORMATION
  Report Type: 
  Country: None (occurrence: None)
  Receive Date: 20111016
  Receipt Date: 20111010
  Transmission Date: 20120403
  Serious: Yes (Death, Hospitalization)
  Sender: FDA-Public Use
  Company Number: US-CELGENEUS-163-21880-11090174

PATIENT
  Sex: Female

DRUGS (10)
  1. DOCUSATE [Concomitant]
     Indication: CONSTIPATION
     Route: 065
  2. LISINOPRIL AND HYDROCHLOROTHIAZIDE [Concomitant]
     Indication: HYPERTENSION
     Route: 065
  3. REVLIMID [Suspect]
     Indication: MULTIPLE MYELOMA
     Dosage: 15 MILLIGRAM
     Route: 048
     Dates: start: 20100701, end: 20110801
  4. OSCAL + VITAMIN D [Concomitant]
     Indication: OSTEOPOROSIS
     Route: 065
  5. PERCOCET [Concomitant]
     Indication: BONE PAIN
     Route: 065
  6. DEXAMETHASONE [Concomitant]
     Route: 065
  7. METOCLOPRAMIDE [Concomitant]
     Indication: NAUSEA
     Route: 065
  8. ASPIRIN [Concomitant]
     Route: 065
  9. POTASSIUM [Concomitant]
     Route: 065
  10. FOSAMAX [Concomitant]
     Indication: OSTEOPOROSIS
     Route: 065

REACTIONS (2)
  - ATRIAL FIBRILLATION [None]
  - CEREBROVASCULAR ACCIDENT [None]
